FAERS Safety Report 23522843 (Version 1)
Quarter: 2024Q1

REPORT INFORMATION
  Report Type: Spontaneous
  Country: US (occurrence: None)
  Receive Date: 20240213
  Receipt Date: 20240213
  Transmission Date: 20240409
  Serious: Yes (Other)
  Sender: FDA-Public Use
  Company Number: None

PATIENT
  Age: 54 Year
  Sex: Male
  Weight: 78.75 kg

DRUGS (1)
  1. FETZIMA [Suspect]
     Active Substance: LEVOMILNACIPRAN HYDROCHLORIDE
     Dosage: OTHER QUANTITY : 1 CAPSULE(S);?FREQUENCY : DAILY;?
     Route: 048
     Dates: start: 20240209, end: 20240212

REACTIONS (7)
  - Nausea [None]
  - Constipation [None]
  - Abdominal distension [None]
  - Pollakiuria [None]
  - Dizziness [None]
  - Pyrexia [None]
  - Vomiting [None]

NARRATIVE: CASE EVENT DATE: 20240210
